FAERS Safety Report 5612174-5 (Version None)
Quarter: 2008Q1

REPORT INFORMATION
  Report Type: 
  Country: None (occurrence: None)
  Receive Date: 20080128
  Receipt Date: 20061103
  Transmission Date: 20080703
  Serious: Yes (Hospitalization)
  Sender: FDA-Public Use
  Company Number: NL01PV06.01525

PATIENT
  Age: 57 Year
  Sex: Male

DRUGS (1)
  1. PAROXETINE [Suspect]
     Indication: DEPRESSION
     Dosage: 20 MG; 60 MG
     Route: 048

REACTIONS (12)
  - BLOOD CALCIUM DECREASED [None]
  - BLOOD CHLORIDE DECREASED [None]
  - BLOOD MAGNESIUM DECREASED [None]
  - BLOOD PRESSURE SYSTOLIC INCREASED [None]
  - DELIRIUM [None]
  - ELECTROLYTE IMBALANCE [None]
  - HYPOKALAEMIA [None]
  - HYPONATRAEMIA [None]
  - HYPOPHOSPHATAEMIA [None]
  - INAPPROPRIATE ANTIDIURETIC HORMONE SECRETION [None]
  - RENAL TUBULAR DISORDER [None]
  - RESPIRATORY ALKALOSIS [None]
